FAERS Safety Report 9627182 (Version 1)
Quarter: 2013Q4

REPORT INFORMATION
  Report Type: Spontaneous
  Country: US (occurrence: US)
  Receive Date: 20131016
  Receipt Date: 20131016
  Transmission Date: 20140711
  Serious: Yes (Other)
  Sender: FDA-Public Use
  Company Number: CHPA2013US015641

PATIENT
  Age: 63 Year
  Sex: Female

DRUGS (1)
  1. EXCEDRIN ES BACK + BODY [Suspect]
     Indication: ARTHRITIS
     Dosage: 2 DF, TID
     Route: 048

REACTIONS (3)
  - Arthritis [Not Recovered/Not Resolved]
  - Weight decreased [Unknown]
  - Incorrect drug administration duration [Unknown]
